FAERS Safety Report 6240619-9 (Version None)
Quarter: 2009Q2

REPORT INFORMATION
  Report Type: 
  Country: None (occurrence: None)
  Receive Date: 20090623
  Receipt Date: 20081107
  Transmission Date: 20091009
  Serious: No
  Sender: FDA-Public Use
  Company Number: US-ASTRAZENECA-2008UW25029

PATIENT
  Age: 9 Year
  Sex: Female

DRUGS (3)
  1. PULMICORT RESPULES [Suspect]
     Indication: BRONCHIAL HYPERREACTIVITY
     Dosage: .5 MCG
     Route: 055
     Dates: start: 20081103
  2. PULMICORT RESPULES [Suspect]
     Indication: RESPIRATORY TRACT INFECTION
     Dosage: .5 MCG
     Route: 055
     Dates: start: 20081103
  3. XOPENEX [Suspect]

REACTIONS (2)
  - DRUG ADMINISTRATION ERROR [None]
  - DYSGEUSIA [None]
